FAERS Safety Report 9788795 (Version 3)
Quarter: 2014Q1

REPORT INFORMATION
  Report Type: Spontaneous
  Country: JP (occurrence: JP)
  Receive Date: 20131230
  Receipt Date: 20140312
  Transmission Date: 20141002
  Serious: Yes (Other)
  Sender: FDA-Public Use
  Company Number: JP-GLAXOSMITHKLINE-B0955992A

PATIENT
  Age: 78 Year
  Sex: Female

DRUGS (4)
  1. ARZERRA [Suspect]
     Indication: CHRONIC LYMPHOCYTIC LEUKAEMIA
     Dosage: 300MG PER DAY
     Route: 042
     Dates: start: 20131204, end: 20131204
  2. ARZERRA [Suspect]
     Indication: CHRONIC LYMPHOCYTIC LEUKAEMIA
     Dosage: 3600MG PER DAY
     Route: 042
     Dates: start: 20131225, end: 20131225
  3. ACETAMINOPHEN [Concomitant]
     Dosage: 400MG PER DAY
     Route: 065
     Dates: start: 20131204, end: 20131204
  4. ZYRTEC [Concomitant]
     Dosage: 10MG PER DAY
     Route: 048
     Dates: start: 20131204, end: 20131204

REACTIONS (8)
  - Disseminated intravascular coagulation [Recovered/Resolved]
  - Tumour lysis syndrome [Recovered/Resolved]
  - Oxygen saturation decreased [Recovered/Resolved]
  - Pyrexia [Recovered/Resolved]
  - Chills [Recovered/Resolved]
  - Platelet count decreased [Unknown]
  - Fibrin degradation products increased [Unknown]
  - Fibrin D dimer increased [Unknown]
